FAERS Safety Report 6554594-0 (Version None)
Quarter: 2010Q1

REPORT INFORMATION
  Report Type: 
  Country: None (occurrence: None)
  Receive Date: 20100127
  Receipt Date: 20100115
  Transmission Date: 20100710
  Serious: Yes (Hospitalization, Other)
  Sender: FDA-Public Use
  Company Number: DE-WYE-G05362110

PATIENT
  Sex: Male

DRUGS (4)
  1. REFACTO [Suspect]
     Indication: FACTOR VIII DEFICIENCY
     Dosage: 2X 1000 IU PER WEEK
     Route: 042
     Dates: start: 19990901, end: 20030301
  2. REFACTO [Suspect]
     Dosage: 3X 1000 IU PER WEEK
     Route: 042
     Dates: start: 20030301, end: 20030702
  3. REFACTO [Suspect]
     Dosage: 2000 IU PER DAY
     Route: 042
     Dates: start: 20030703, end: 20030704
  4. REFACTO [Suspect]
     Dosage: 3X 1000 IU PER WEEK
     Route: 042
     Dates: start: 20030705

REACTIONS (6)
  - DEVICE RELATED INFECTION [None]
  - HENOCH-SCHONLEIN PURPURA [None]
  - INJURY [None]
  - MEDICAL DEVICE COMPLICATION [None]
  - STAPHYLOCOCCAL INFECTION [None]
  - THROMBOSIS IN DEVICE [None]
